FAERS Safety Report 25477986 (Version 1)
Quarter: 2025Q2

REPORT INFORMATION
  Report Type: Spontaneous
  Country: US (occurrence: None)
  Receive Date: 20250624
  Receipt Date: 20250624
  Transmission Date: 20250716
  Serious: Yes (Other)
  Sender: FDA-CTU
  Company Number: None

PATIENT
  Age: 97 Year
  Sex: Female

DRUGS (1)
  1. IBRANCE [Suspect]
     Active Substance: PALBOCICLIB
     Indication: Breast cancer female
     Route: 048

REACTIONS (8)
  - Illness [None]
  - Dyspnoea [None]
  - Pneumonia [None]
  - White blood cell count decreased [None]
  - Fatigue [None]
  - Confusional state [None]
  - Lethargy [None]
  - Asthenia [None]
